FAERS Safety Report 14509521 (Version 2)
Quarter: 2018Q2

REPORT INFORMATION
  Report Type: Report from Study
  Country: US (occurrence: US)
  Receive Date: 20180209
  Receipt Date: 20180514
  Transmission Date: 20180711
  Serious: Yes (Other)
  Sender: FDA-Public Use
  Company Number: PHEH2018US004157

PATIENT
  Sex: Female

DRUGS (2)
  1. COSENTYX [Suspect]
     Active Substance: SECUKINUMAB
     Indication: PSORIATIC ARTHROPATHY
     Dosage: 150 MG, QMO
     Route: 058
  2. COSENTYX [Suspect]
     Active Substance: SECUKINUMAB
     Indication: PSORIASIS

REACTIONS (14)
  - Malaise [Unknown]
  - Pyrexia [Unknown]
  - Retching [Unknown]
  - Renal disorder [Unknown]
  - Arthropathy [Unknown]
  - Therapeutic response shortened [Unknown]
  - Burning sensation [Unknown]
  - Fatigue [Unknown]
  - Neck pain [Unknown]
  - Dysphonia [Unknown]
  - Neuropathy peripheral [Unknown]
  - Cyst [Unknown]
  - Cough [Unknown]
  - Eye disorder [Unknown]
